FAERS Safety Report 24877750 (Version 1)
Quarter: 2025Q1

REPORT INFORMATION
  Report Type: Report from Study
  Country: IT (occurrence: IT)
  Receive Date: 20250123
  Receipt Date: 20250123
  Transmission Date: 20250408
  Serious: Yes (Other)
  Sender: ACCORD
  Company Number: None

PATIENT
  Age: 78 Year
  Sex: Male
  Weight: 75 kg

DRUGS (2)
  1. GEMCITABINE [Suspect]
     Active Substance: GEMCITABINE
     Indication: Mesothelioma
  2. RAMUCIRUMAB [Suspect]
     Active Substance: RAMUCIRUMAB
     Indication: Mesothelioma

REACTIONS (3)
  - Alopecia [Recovering/Resolving]
  - Leukopenia [Recovered/Resolved]
  - Neutropenia [Recovered/Resolved]

NARRATIVE: CASE EVENT DATE: 20240401
